FAERS Safety Report 20523512 (Version 1)
Quarter: 2022Q1

REPORT INFORMATION
  Report Type: Spontaneous
  Country: US (occurrence: US)
  Receive Date: 20220228
  Receipt Date: 20220228
  Transmission Date: 20220423
  Serious: No
  Sender: FDA-Public Use
  Company Number: US-NOVAST LABORATORIES INC.-2021NOV000357

PATIENT

DRUGS (1)
  1. ZOVIA 1/35 [Suspect]
     Active Substance: ETHINYL ESTRADIOL\ETHYNODIOL DIACETATE
     Indication: Contraception
     Dosage: DOSE WAS 35
     Route: 065
     Dates: start: 20211226

REACTIONS (3)
  - Heart rate increased [Recovering/Resolving]
  - Abdominal pain [Recovering/Resolving]
  - Intermenstrual bleeding [Recovering/Resolving]

NARRATIVE: CASE EVENT DATE: 20211226
